FAERS Safety Report 12893689 (Version 3)
Quarter: 2017Q1

REPORT INFORMATION
  Report Type: Spontaneous
  Country: IN (occurrence: IN)
  Receive Date: 20161028
  Receipt Date: 20170209
  Transmission Date: 20170428
  Serious: Yes (Life-Threatening, Hospitalization, Other)
  Sender: FDA-Public Use
  Company Number: IN-GLAXOSMITHKLINE-IN2016GSK156206

PATIENT
  Age: 65 Year
  Sex: Male

DRUGS (4)
  1. ATORLIP [Concomitant]
     Route: 048
  2. CEFTUM [Suspect]
     Active Substance: CEFUROXIME
     Indication: COUGH
     Dosage: 250 MG, UNK
     Route: 048
  3. METOLAR XR [Concomitant]
     Active Substance: METOPROLOL SUCCINATE
     Route: 048
  4. CLOPIVAS AP [Concomitant]
     Route: 048

REACTIONS (5)
  - Product quality issue [Unknown]
  - Loss of consciousness [Recovered/Resolved]
  - Product contamination [Unknown]
  - Pruritus generalised [Recovered/Resolved]
  - Anxiety [Recovered/Resolved]
